FAERS Safety Report 9465242 (Version 1)
Quarter: 2013Q3

REPORT INFORMATION
  Report Type: Spontaneous
  Country: US (occurrence: US)
  Receive Date: 20130819
  Receipt Date: 20130819
  Transmission Date: 20140515
  Serious: No
  Sender: FDA-Public Use
  Company Number: US-009507513-1308USA003072

PATIENT
  Age: 35 Year
  Sex: Female

DRUGS (4)
  1. NEXPLANON [Suspect]
     Indication: MENSTRUAL CYCLE MANAGEMENT
     Dosage: UNK
     Route: 059
     Dates: start: 20130527
  2. NEXPLANON [Suspect]
     Indication: MENORRHAGIA
  3. CYMBALTA [Concomitant]
  4. ZOCOR [Concomitant]

REACTIONS (1)
  - Menorrhagia [Unknown]
